FAERS Safety Report 16563354 (Version 1)
Quarter: 2019Q3

REPORT INFORMATION
  Report Type: Spontaneous
  Country: CH (occurrence: CH)
  Receive Date: 20190711
  Receipt Date: 20190711
  Transmission Date: 20191004
  Serious: Yes (Death, Hospitalization, Disabling)
  Sender: FDA-Public Use
  Company Number: CH-ROCHE-2323903

PATIENT
  Age: 66 Year
  Sex: Male
  Weight: 87 kg

DRUGS (10)
  1. PERJETA [Suspect]
     Active Substance: PERTUZUMAB
     Indication: ADENOCARCINOMA GASTRIC
     Route: 042
     Dates: start: 20180219, end: 20180709
  2. CARBOPLATIN. [Concomitant]
     Active Substance: CARBOPLATIN
     Indication: ADENOCARCINOMA GASTRIC
     Route: 042
     Dates: start: 20180709, end: 20190104
  3. SOLU-MEDROL [Concomitant]
     Active Substance: METHYLPREDNISOLONE SODIUM SUCCINATE
     Route: 042
  4. PERJETA [Suspect]
     Active Substance: PERTUZUMAB
     Indication: ADENOCARCINOMA GASTRIC
     Dosage: LAST DOSE ON 04/JAN/2019
     Route: 042
     Dates: start: 20180709
  5. TAXOTERE [Concomitant]
     Active Substance: DOCETAXEL
     Indication: ADENOCARCINOMA GASTRIC
     Route: 042
     Dates: start: 20180219, end: 20180709
  6. HERCEPTIN [Concomitant]
     Active Substance: TRASTUZUMAB
     Indication: ADENOCARCINOMA GASTRIC
     Route: 041
     Dates: start: 20180219, end: 20180709
  7. TAXOTERE [Concomitant]
     Active Substance: DOCETAXEL
     Indication: ADENOCARCINOMA GASTRIC
     Route: 042
     Dates: start: 20180709, end: 20190104
  8. BENERVA [Concomitant]
     Active Substance: THIAMINE HYDROCHLORIDE
     Indication: MALNUTRITION
     Route: 048
  9. CARBOPLATIN. [Concomitant]
     Active Substance: CARBOPLATIN
     Indication: ADENOCARCINOMA GASTRIC
     Route: 042
     Dates: start: 20180219, end: 20180709
  10. HERCEPTIN [Concomitant]
     Active Substance: TRASTUZUMAB
     Indication: ADENOCARCINOMA GASTRIC
     Route: 042
     Dates: start: 20180709, end: 20190104

REACTIONS (1)
  - Acute respiratory distress syndrome [Fatal]

NARRATIVE: CASE EVENT DATE: 20190124
